FAERS Safety Report 19454810 (Version 2)
Quarter: 2022Q2

REPORT INFORMATION
  Report Type: Report from Study
  Country: US (occurrence: US)
  Receive Date: 20210623
  Receipt Date: 20220610
  Transmission Date: 20220720
  Serious: Yes (Death, Other)
  Sender: FDA-Public Use
  Company Number: US-GLAXOSMITHKLINE-US2021AMR045411

PATIENT

DRUGS (1)
  1. BELANTAMAB MAFODOTIN [Suspect]
     Active Substance: BELANTAMAB MAFODOTIN
     Indication: Plasma cell myeloma
     Dosage: 2.5 MG/KG
     Route: 042
     Dates: start: 20210107, end: 20210128

REACTIONS (14)
  - Death [Fatal]
  - Plasma cell myeloma [Unknown]
  - Hemiparesis [Unknown]
  - Encephalitis [Recovering/Resolving]
  - Keratopathy [Unknown]
  - Confusional state [Unknown]
  - Mental status changes [Unknown]
  - Central nervous system lesion [Unknown]
  - Vasculitis [Unknown]
  - Neurological symptom [Recovering/Resolving]
  - Aphasia [Unknown]
  - Balance disorder [Unknown]
  - Cerebral disorder [Unknown]
  - Condition aggravated [Unknown]

NARRATIVE: CASE EVENT DATE: 20210201
